FAERS Safety Report 5519835-7 (Version None)
Quarter: 2007Q4

REPORT INFORMATION
  Report Type: 
  Country: None (occurrence: None)
  Receive Date: 20071116
  Receipt Date: 20070912
  Transmission Date: 20080405
  Serious: No
  Sender: FDA-Public Use
  Company Number: A0681460A

PATIENT
  Age: 60 Year
  Sex: Male

DRUGS (2)
  1. COREG CR [Suspect]
     Indication: HYPERTENSION
     Route: 048
     Dates: start: 20070401
  2. MICARDIS [Concomitant]

REACTIONS (2)
  - NIGHTMARE [None]
  - SOMNAMBULISM [None]
